FAERS Safety Report 4452574-2 (Version None)
Quarter: 2004Q3

REPORT INFORMATION
  Report Type: 
  Country: None (occurrence: None)
  Receive Date: 20040913
  Receipt Date: 20040726
  Transmission Date: 20050211
  Serious: No
  Sender: FDA-Public Use
  Company Number: 2004-BP-06263BP(0)

PATIENT
  Age: 70 Year
  Sex: Female

DRUGS (5)
  1. SPIRIVA [Suspect]
     Indication: CHRONIC OBSTRUCTIVE AIRWAYS DISEASE
     Dosage: 18 MCG (18 MCG, IH)
     Route: 055
     Dates: start: 20040713
  2. ADVAIR (SERETIDE MITE) [Concomitant]
  3. GUAIFENEX (ENTEX) [Concomitant]
  4. LANOXIN [Concomitant]
  5. SINGULAIR [Concomitant]

REACTIONS (2)
  - FORMICATION [None]
  - PRURITUS GENERALISED [None]
